FAERS Safety Report 16067911 (Version 1)
Quarter: 2019Q1

REPORT INFORMATION
  Report Type: Spontaneous
  Country: DE (occurrence: DE)
  Receive Date: 20190313
  Receipt Date: 20190313
  Transmission Date: 20190418
  Serious: Yes (Congenital Anomaly)
  Sender: FDA-Public Use
  Company Number: DE-MYLANLABS-2019M1023054

PATIENT
  Age: 1 Day
  Sex: Male
  Weight: 4.03 kg

DRUGS (9)
  1. DOXYLAMINE [Suspect]
     Active Substance: DOXYLAMINE
     Indication: SLEEP DISORDER
     Dosage: 45 [MG/D ]/ 15 - 45 MG/D
     Route: 064
     Dates: start: 20170731, end: 20180215
  2. ZOLPIDEM [Suspect]
     Active Substance: ZOLPIDEM\ZOLPIDEM TARTRATE
     Indication: SLEEP DISORDER
     Dosage: 10 [MG/D (BIS 5) ]
     Route: 064
     Dates: start: 20170616, end: 20170727
  3. ZINC CHLORIDE [Concomitant]
     Active Substance: ZINC CHLORIDE
     Indication: HERPES ZOSTER
     Dosage: UNK
     Route: 064
     Dates: start: 20180110, end: 20180112
  4. FEMIBION 1 [Concomitant]
     Indication: PROPHYLAXIS OF NEURAL TUBE DEFECT
     Dosage: UNK
     Route: 064
     Dates: start: 20170616, end: 20170731
  5. L-THYROXIN                         /00068001/ [Concomitant]
     Active Substance: LEVOTHYROXINE
     Indication: AUTOIMMUNE THYROIDITIS
     Dosage: 100 [?G/D (BIS 50) ]
     Route: 064
     Dates: start: 20170618, end: 20180315
  6. AMITRIPTYLINE [Suspect]
     Active Substance: AMITRIPTYLINE
     Indication: SLEEP DISORDER
     Dosage: 12.5 MILLIGRAM, QD (12.5 [MG/D ])
     Route: 064
     Dates: start: 20170721, end: 20170731
  7. TANNOLACT [Concomitant]
     Indication: HERPES ZOSTER
     Dosage: UNK
     Route: 064
     Dates: start: 20180110, end: 20180112
  8. LEMTRADA [Concomitant]
     Active Substance: ALEMTUZUMAB
     Indication: MULTIPLE SCLEROSIS
     Route: 064
  9. DRONABINOL. [Concomitant]
     Active Substance: DRONABINOL
     Indication: PAIN
     Dosage: UNK
     Route: 064
     Dates: start: 20170616, end: 20170719

REACTIONS (3)
  - Ventricular septal defect [Unknown]
  - Large for dates baby [Unknown]
  - Foetal exposure during pregnancy [Recovered/Resolved]

NARRATIVE: CASE EVENT DATE: 20180315
